FAERS Safety Report 16279846 (Version 5)
Quarter: 2019Q2

REPORT INFORMATION
  Report Type: Report from Study
  Country: US (occurrence: US)
  Receive Date: 20190507
  Receipt Date: 20190624
  Transmission Date: 20190711
  Serious: Yes (Hospitalization, Other)
  Sender: FDA-Public Use
  Company Number: US-SA-2018SA248068

PATIENT
  Age: 57 Year
  Sex: Male
  Weight: 75 kg

DRUGS (8)
  1. ALEMTUZUMAB [Suspect]
     Active Substance: ALEMTUZUMAB
     Dosage: 12 MG, QD
     Route: 041
     Dates: start: 20180827, end: 20180829
  2. ALEMTUZUMAB [Suspect]
     Active Substance: ALEMTUZUMAB
     Indication: MULTIPLE SCLEROSIS
     Dosage: 12 MG, UNK
     Route: 041
     Dates: start: 20170501, end: 20170505
  3. FLOMAX [Concomitant]
     Active Substance: TAMSULOSIN HYDROCHLORIDE
     Dosage: 0.4 MG, QD
     Route: 048
  4. ASPIRIN [ACETYLSALICYLIC ACID] [Concomitant]
     Active Substance: ASPIRIN
     Dosage: 325 MG, PRN
     Route: 048
  5. ACYCLOVIR [ACICLOVIR] [Concomitant]
     Active Substance: ACYCLOVIR
     Dosage: 400 MG, BID
     Route: 048
  6. WELLBUTRIN [Concomitant]
     Active Substance: BUPROPION HYDROCHLORIDE
     Dosage: 300 MG, QD
     Route: 048
  7. VITAMIN D [VITAMIN D NOS] [Concomitant]
     Active Substance: VITAMIN D NOS
     Dosage: 1000 U, QD
     Route: 048
  8. ZANTAC [Concomitant]
     Active Substance: RANITIDINE HYDROCHLORIDE
     Dosage: 150 MG, BID
     Route: 048

REACTIONS (26)
  - Neutrophil percentage decreased [Not Recovered/Not Resolved]
  - Lymphocyte percentage increased [Not Recovered/Not Resolved]
  - Mean cell volume abnormal [Unknown]
  - Supraventricular tachycardia [Unknown]
  - Band neutrophil percentage decreased [Not Recovered/Not Resolved]
  - Normocytic anaemia [Unknown]
  - Aspartate aminotransferase increased [Not Recovered/Not Resolved]
  - Myelocyte count increased [Unknown]
  - Hepatic enzyme increased [Not Recovered/Not Resolved]
  - Haemoglobin abnormal [Unknown]
  - Bone marrow failure [Unknown]
  - Monocyte percentage increased [Not Recovered/Not Resolved]
  - Mean cell haemoglobin concentration abnormal [Unknown]
  - Red cell distribution width abnormal [Unknown]
  - Haematocrit abnormal [Unknown]
  - Blood alkaline phosphatase increased [Unknown]
  - White blood cell count abnormal [Unknown]
  - Marrow hyperplasia [Unknown]
  - Differential white blood cell count abnormal [Unknown]
  - Neutrophil count decreased [Not Recovered/Not Resolved]
  - Myelodysplastic syndrome [Unknown]
  - Inappropriate schedule of product administration [Unknown]
  - Neutropenia [Not Recovered/Not Resolved]
  - Febrile neutropenia [Not Recovered/Not Resolved]
  - Red blood cell count abnormal [Unknown]
  - Promyelocyte count decreased [Unknown]

NARRATIVE: CASE EVENT DATE: 20180814
